FAERS Safety Report 4429976-3 (Version None)
Quarter: 2004Q3

REPORT INFORMATION
  Report Type: 
  Country: None (occurrence: None)
  Receive Date: 20040817
  Receipt Date: 20040806
  Transmission Date: 20050211
  Serious: Yes (Hospitalization)
  Sender: FDA-Public Use
  Company Number: 2004UW16769

PATIENT
  Age: 78 Year
  Sex: Male
  Weight: 68.0396 kg

DRUGS (7)
  1. SEROQUEL [Suspect]
     Indication: AGGRESSION
     Dates: start: 20040201
  2. HALOPERIDOL [Suspect]
     Indication: AGGRESSION
     Dosage: 1 MG PRN PO
     Route: 048
     Dates: start: 20040201, end: 20040607
  3. HALOPERIDOL [Suspect]
     Indication: AGGRESSION
     Dosage: 1 MG TID PO
     Route: 048
     Dates: start: 20040201, end: 20040607
  4. HALOPERIDOL [Suspect]
     Indication: AGGRESSION
     Dosage: 0.5 MG TID PO
     Route: 048
     Dates: start: 20040201, end: 20040607
  5. ZYPREXA [Suspect]
     Indication: AGGRESSION
     Dates: start: 20040101, end: 20040201
  6. LISINOPRIL AND HYDROCHLOROTHIAZIDE [Concomitant]
  7. ZESTRIL [Concomitant]

REACTIONS (8)
  - DIFFICULTY IN WALKING [None]
  - DRUG EFFECT DECREASED [None]
  - DRUG WITHDRAWAL SYNDROME [None]
  - EATING DISORDER [None]
  - PARKINSONISM [None]
  - TREMOR [None]
  - WEIGHT DECREASED [None]
  - WEIGHT INCREASED [None]
